FAERS Safety Report 6369918-7 (Version None)
Quarter: 2009Q3

REPORT INFORMATION
  Report Type: 
  Country: None (occurrence: None)
  Receive Date: 20090923
  Receipt Date: 20070814
  Transmission Date: 20100115
  Serious: Yes (Other)
  Sender: FDA-Public Use
  Company Number: US-ASTRAZENECA-2006UW11362

PATIENT
  Age: 573 Month
  Sex: Female
  Weight: 96.6 kg

DRUGS (21)
  1. SEROQUEL [Suspect]
     Indication: DEPRESSION
     Dosage: 200 MG - 300 MG
     Route: 048
     Dates: start: 20040601, end: 20041201
  2. SEROQUEL [Suspect]
     Indication: ANXIETY
     Dosage: 200 MG - 300 MG
     Route: 048
     Dates: start: 20040601, end: 20041201
  3. SEROQUEL [Suspect]
     Dosage: 100 - 200 MG
     Route: 048
     Dates: start: 20040601
  4. SEROQUEL [Suspect]
     Dosage: 100 - 200 MG
     Route: 048
     Dates: start: 20040601
  5. DEPAKOTE [Concomitant]
  6. EFFEXOR [Concomitant]
  7. AMBIEN [Concomitant]
  8. ACTOS [Concomitant]
  9. CLONAZEPAM [Concomitant]
  10. METFORMIN HCL [Concomitant]
  11. LISINOPRIL AND HYDROCHLOROTHIAZIDE [Concomitant]
  12. LANTUS [Concomitant]
  13. GLIPIZIDE [Concomitant]
  14. ATENOLOL [Concomitant]
  15. FUROSEMIDE [Concomitant]
  16. MERIDIA [Concomitant]
  17. DIETHYLPROPION HCL [Concomitant]
  18. BONTRIL [Concomitant]
  19. TIZANIDINE HCL [Concomitant]
  20. HYDROCODONE [Concomitant]
  21. METHYLPREDNISOLONE 4MG TAB [Concomitant]

REACTIONS (2)
  - DIABETES MELLITUS [None]
  - DIABETIC KETOACIDOSIS [None]
